FAERS Safety Report 4693779-5 (Version None)
Quarter: 2005Q2

REPORT INFORMATION
  Report Type: 
  Country: None (occurrence: None)
  Receive Date: 20050616
  Receipt Date: 20050603
  Transmission Date: 20051028
  Serious: Yes (Other)
  Sender: FDA-Public Use
  Company Number: 2005069558

PATIENT
  Age: 26 Year
  Sex: Female
  Weight: 54.4316 kg

DRUGS (4)
  1. DEPO-PROVERA [Suspect]
     Indication: CONTRACEPTION
     Dosage: SEE IMAGE
     Route: 030
     Dates: start: 20031206, end: 20031206
  2. DEPO-PROVERA [Suspect]
     Indication: CONTRACEPTION
     Dosage: SEE IMAGE
     Route: 030
     Dates: start: 20050401, end: 20050401
  3. NEXIUM [Concomitant]
  4. CLONAZEPAM [Concomitant]

REACTIONS (5)
  - GASTRIC DISORDER [None]
  - URINARY TRACT INFECTION [None]
  - UTERINE POLYP [None]
  - VAGINAL INFECTION [None]
  - VAGINAL MYCOSIS [None]
